FAERS Safety Report 18153744 (Version 1)
Quarter: 2020Q3

REPORT INFORMATION
  Report Type: Report from Study
  Country: PK (occurrence: PK)
  Receive Date: 20200816
  Receipt Date: 20200816
  Transmission Date: 20201103
  Serious: Yes (Death, Hospitalization)
  Sender: FDA-Public Use
  Company Number: NVSC2020PK224804

PATIENT
  Age: 58 Year
  Sex: Female
  Weight: 102 kg

DRUGS (1)
  1. KISQALI [Suspect]
     Active Substance: RIBOCICLIB
     Indication: BREAST CANCER
     Dosage: 400 MG, QD
     Route: 048
     Dates: start: 20200505

REACTIONS (4)
  - Malignant neoplasm progression [Fatal]
  - Chest pain [Unknown]
  - Breast cancer [Fatal]
  - Dyspnoea [Unknown]
